FAERS Safety Report 4382017-9 (Version None)
Quarter: 2004Q2

REPORT INFORMATION
  Report Type: 
  Country: None (occurrence: None)
  Receive Date: 20040615
  Receipt Date: 20040602
  Transmission Date: 20050107
  Serious: Yes (Death, Hospitalization)
  Sender: FDA-Public Use
  Company Number: HQWYE907111FEB04

PATIENT
  Age: 81 Year
  Sex: Male

DRUGS (5)
  1. ANCARON (AMIODARONE, TABLET) [Suspect]
     Indication: VENTRICULAR EXTRASYSTOLES
     Dosage: 200 MG 1X PER 1 DAY ORAL
     Route: 048
     Dates: start: 20030301, end: 20040107
  2. PLETAL [Concomitant]
  3. LEVOTHYROXINE SODIUM [Concomitant]
  4. ZANTAC [Concomitant]
  5. BAYASPIRINA (ACETYLSALICYLIC ACID) [Concomitant]

REACTIONS (16)
  - BLOOD CHOLESTEROL INCREASED [None]
  - BLOOD LACTATE DEHYDROGENASE INCREASED [None]
  - CARDIAC FAILURE CONGESTIVE [None]
  - CONDITION AGGRAVATED [None]
  - GASTROENTERITIS VIRAL [None]
  - GLOMERULONEPHRITIS [None]
  - HAEMODIALYSIS [None]
  - HAEMOPTYSIS [None]
  - INTERSTITIAL LUNG DISEASE [None]
  - OPPORTUNISTIC INFECTION [None]
  - PLEURAL EFFUSION [None]
  - PNEUMONIA PRIMARY ATYPICAL [None]
  - PROCEDURAL COMPLICATION [None]
  - RENAL FAILURE CHRONIC [None]
  - RESPIRATORY FAILURE [None]
  - THROMBOCYTOPENIA [None]
